FAERS Safety Report 5927843-7 (Version None)
Quarter: 2008Q4

REPORT INFORMATION
  Report Type: 
  Country: None (occurrence: None)
  Receive Date: 20081021
  Receipt Date: 20081013
  Transmission Date: 20090506
  Serious: Yes (Hospitalization, Other)
  Sender: FDA-Public Use
  Company Number: 2008SP020857

PATIENT
  Age: 54 Year
  Sex: Female

DRUGS (3)
  1. PEG-INTRON [Suspect]
     Indication: HEPATITIS C
     Dosage: ; SC
     Route: 058
  2. RIBAVIRIN [Suspect]
     Indication: HEPATITIS C
     Dosage: ; PO
     Route: 048
  3. VALIUM [Concomitant]

REACTIONS (11)
  - AFFECT LABILITY [None]
  - AMNESIA [None]
  - BALANCE DISORDER [None]
  - DEHYDRATION [None]
  - FALL [None]
  - FATIGUE [None]
  - MENTAL DISORDER [None]
  - NO THERAPEUTIC RESPONSE [None]
  - PAIN [None]
  - SUICIDAL IDEATION [None]
  - TONGUE DRY [None]
